FAERS Safety Report 10158568 (Version 1)
Quarter: 2014Q2

REPORT INFORMATION
  Report Type: Spontaneous
  Country: DE (occurrence: DE)
  Receive Date: 20140507
  Receipt Date: 20140507
  Transmission Date: 20141212
  Serious: Yes (Other)
  Sender: FDA-Public Use
  Company Number: PHHY2014DE054251

PATIENT
  Age: 54 Year
  Sex: Female

DRUGS (20)
  1. ALLOPURINOL [Suspect]
  2. PROPRANOLOL [Suspect]
  3. METAMIZOLE [Suspect]
  4. ABACAVIR [Concomitant]
  5. LAMIVUDINE [Concomitant]
  6. DARUNAVIR [Concomitant]
  7. RITONAVIR [Concomitant]
  8. MIRTAZAPIN [Concomitant]
  9. OLANZAPIN [Concomitant]
  10. CALCITRIOL [Concomitant]
  11. L-THYROXIN [Concomitant]
  12. BIPERIDEN [Concomitant]
  13. METRONIDAZOLE [Concomitant]
  14. VANCOMYCIN [Concomitant]
  15. FIDAXOMICIN [Concomitant]
  16. CIPROFLOXACIN [Concomitant]
  17. MEROPENEM [Concomitant]
  18. TIGECYCLINE [Concomitant]
  19. CASPOFUNGIN [Concomitant]
  20. ACICLOVIR [Concomitant]

REACTIONS (2)
  - Pneumonia aspiration [Unknown]
  - Agranulocytosis [Unknown]
